FAERS Safety Report 8329389-8 (Version None)
Quarter: 2012Q2

REPORT INFORMATION
  Report Type: 
  Country: None (occurrence: None)
  Receive Date: 20120502
  Receipt Date: 20120413
  Transmission Date: 20120825
  Serious: No
  Sender: FDA-Public Use
  Company Number: US-JNJFOC-20120407373

PATIENT
  Sex: Female
  Weight: 108.86 kg

DRUGS (4)
  1. LISINOPRIL [Concomitant]
     Indication: BLOOD PRESSURE
     Route: 048
  2. TRICOR [Concomitant]
     Indication: BLOOD CHOLESTEROL
     Route: 048
  3. INVEGA [Suspect]
     Indication: SCHIZOPHRENIA, PARANOID TYPE
     Route: 065
     Dates: start: 20110901
  4. VITAMINS NOS [Concomitant]
     Route: 065

REACTIONS (2)
  - PRODUCT PACKAGING ISSUE [None]
  - SCHIZOPHRENIA, PARANOID TYPE [None]
